FAERS Safety Report 6024450-5 (Version None)
Quarter: 2008Q4

REPORT INFORMATION
  Report Type: 
  Country: None (occurrence: None)
  Receive Date: 20081229
  Receipt Date: 20081229
  Transmission Date: 20090506
  Serious: Yes (Other)
  Sender: FDA-Public Use
  Company Number: None

PATIENT
  Sex: Female

DRUGS (2)
  1. CANKAID, 10% CARB. PEROXIDE, PAC/LCC [Suspect]
     Dosage: 3-4 DROPS 4 X'S DAILY ORAL
     Route: 048
     Dates: start: 20080704
  2. CORTICOSTEROID INJECTION [Concomitant]

REACTIONS (1)
  - CHEMICAL BURN OF SKIN [None]
